FAERS Safety Report 8246628-2 (Version None)
Quarter: 2012Q1

REPORT INFORMATION
  Report Type: 
  Country: None (occurrence: None)
  Receive Date: 20120330
  Receipt Date: 20120322
  Transmission Date: 20120608
  Serious: Yes (Other)
  Sender: FDA-Public Use
  Company Number: US-PFIZER INC-2012075888

PATIENT
  Sex: Male

DRUGS (8)
  1. ZANTAC [Concomitant]
     Dosage: 150 MG, DAILY
     Route: 048
  2. UNIVASC [Concomitant]
     Dosage: 15 MG, DAILY
     Route: 048
  3. CHLORDIAZEPOXIDE HYDROCHLORIDE [Concomitant]
     Indication: ANXIETY
     Dosage: 50 MG, 3X/DAY
     Route: 048
  4. FLONASE [Concomitant]
     Dosage: 50 MCG, 2 SPRAYS PER NOSTIRL
  5. SOMA [Concomitant]
     Indication: MUSCLE SPASMS
     Dosage: 350 MG, 2X/DAY PRN
  6. LORTAB [Concomitant]
     Indication: PAIN
     Dosage: 10-500 MG TABLET Q6HR PRN
     Route: 048
  7. NEURONTIN [Suspect]
     Dosage: 800 MG, 2X/DAY
  8. GABAPENTIN [Concomitant]
     Dosage: 600 MG, 2X/DAY (1 PO BID)
     Route: 048

REACTIONS (7)
  - TREMOR [None]
  - BACK PAIN [None]
  - CONVULSION [None]
  - ALCOHOLISM [None]
  - NEUROPATHY PERIPHERAL [None]
  - ESSENTIAL HYPERTENSION [None]
  - ASTHENIA [None]
